FAERS Safety Report 6923892-0 (Version None)
Quarter: 2010Q3

REPORT INFORMATION
  Report Type: 
  Country: None (occurrence: None)
  Receive Date: 20100813
  Receipt Date: 20100420
  Transmission Date: 20110219
  Serious: No
  Sender: FDA-Public Use
  Company Number: US-BRISTOL-MYERS SQUIBB COMPANY-15069396

PATIENT
  Age: 48 Year
  Sex: Male
  Weight: 81 kg

DRUGS (12)
  1. REYATAZ [Suspect]
     Indication: HIV INFECTION
     Route: 048
     Dates: start: 20080328, end: 20091211
  2. NORVIR [Suspect]
     Dates: end: 20091201
  3. KALETRA [Suspect]
  4. LEXAPRO [Concomitant]
  5. VICODIN ES [Concomitant]
  6. FLEXERIL [Concomitant]
  7. FLOMAX [Concomitant]
  8. FIORICET [Concomitant]
  9. NORVASC [Concomitant]
  10. MAXAIR [Concomitant]
  11. ISENTRESS [Concomitant]
  12. MARAVIROC [Concomitant]

REACTIONS (1)
  - NEPHROLITHIASIS [None]
